FAERS Safety Report 7027457-4 (Version None)
Quarter: 2010Q3

REPORT INFORMATION
  Report Type: 
  Country: None (occurrence: None)
  Receive Date: 20100930
  Receipt Date: 20100921
  Transmission Date: 20110219
  Serious: Yes (Other)
  Sender: FDA-Public Use
  Company Number: 2010JP004580

PATIENT
  Age: 56 Year
  Sex: Male
  Weight: 83.5 kg

DRUGS (17)
  1. TACROLIMUS [Suspect]
     Indication: MYASTHENIA GRAVIS
     Dosage: 3 MG, /D, ORAL ; 1 MG, /D, ORAL
     Route: 048
     Dates: start: 20100602, end: 20100728
  2. TACROLIMUS [Suspect]
     Indication: MYASTHENIA GRAVIS
     Dosage: 3 MG, /D, ORAL ; 1 MG, /D, ORAL
     Route: 048
     Dates: start: 20100804
  3. EPLERENONE [Suspect]
     Dosage: ORAL
     Route: 048
     Dates: start: 20100603, end: 20100729
  4. TICLOPIDINE HCL [Concomitant]
  5. CARVEDILOL [Concomitant]
  6. ISOSORBIDE MONONITRATE [Concomitant]
  7. ALLOPURINOL [Concomitant]
  8. ENALAPRIL MALEATE [Concomitant]
  9. MUCOSTA (REBAMIPIDE) [Concomitant]
  10. BAYMYCARD (NISOLDIPINE) [Concomitant]
  11. NIKORANMART (NICORANDIL) [Concomitant]
  12. AMARYL [Concomitant]
  13. DIOVAN [Concomitant]
  14. CRESTOR [Concomitant]
  15. ROHYPNOL (FLUNITRAZEPAM) [Concomitant]
  16. FRANDOL (ISOSORIBIDE DINITRATE) [Concomitant]
  17. MESTINON [Concomitant]

REACTIONS (4)
  - BLOOD CREATININE INCREASED [None]
  - BLOOD POTASSIUM INCREASED [None]
  - BLOOD UREA INCREASED [None]
  - DRUG INTERACTION [None]
